FAERS Safety Report 8131672-6 (Version None)
Quarter: 2012Q1

REPORT INFORMATION
  Report Type: 
  Country: None (occurrence: None)
  Receive Date: 20120207
  Receipt Date: 20120124
  Transmission Date: 20120608
  Serious: Yes (Other)
  Sender: FDA-Public Use
  Company Number: DKLU1076036

PATIENT
  Age: 7 Year
  Sex: Male

DRUGS (2)
  1. MARIJUANA (CANNABIS SATIVA) [Suspect]
     Indication: PRODUCT USED FOR UNKNOWN INDICATION
     Dosage: TRANSPLACENTAL
     Route: 064
  2. DESOXYN [Suspect]
     Indication: PRODUCT USED FOR UNKNOWN INDICATION
     Dosage: TRANSPLACENTAL
     Route: 064

REACTIONS (11)
  - PHYSICAL ABUSE [None]
  - EYELID DISORDER [None]
  - MIXED RECEPTIVE-EXPRESSIVE LANGUAGE DISORDER [None]
  - MATERNAL DRUGS AFFECTING FOETUS [None]
  - DISTURBANCE IN ATTENTION [None]
  - ANXIETY [None]
  - AUTISM SPECTRUM DISORDER [None]
  - ANOMALY OF EXTERNAL EAR CONGENITAL [None]
  - AGGRESSION [None]
  - FEAR [None]
  - EDUCATIONAL PROBLEM [None]
